FAERS Safety Report 19968447 (Version 2)
Quarter: 2021Q4

REPORT INFORMATION
  Report Type: Spontaneous
  Country: US (occurrence: US)
  Receive Date: 20211019
  Receipt Date: 20211123
  Transmission Date: 20220303
  Serious: No
  Sender: FDA-Public Use
  Company Number: US-APOTEX-2021AP044135

PATIENT
  Age: 22 Year
  Sex: Male

DRUGS (1)
  1. GUANFACINE [Suspect]
     Active Substance: GUANFACINE
     Indication: Attention deficit hyperactivity disorder
     Dosage: 4 MILLIGRAM, QD
     Route: 065

REACTIONS (4)
  - Impulsive behaviour [Unknown]
  - Condition aggravated [Unknown]
  - Product substitution issue [Unknown]
  - Drug ineffective [Unknown]
